FAERS Safety Report 10027353 (Version 3)
Quarter: 2015Q2

REPORT INFORMATION
  Report Type: Spontaneous
  Country: US (occurrence: US)
  Receive Date: 20140321
  Receipt Date: 20150427
  Transmission Date: 20150821
  Serious: Yes (Other)
  Sender: FDA-Public Use
  Company Number: US-BAYER-2014-040031

PATIENT
  Age: 42 Year
  Sex: Female

DRUGS (12)
  1. SYMBICORT [Concomitant]
     Active Substance: BUDESONIDE\FORMOTEROL FUMARATE DIHYDRATE
     Dosage: 160/4.5 TWICE DAILY
  2. KLONOPIN [Concomitant]
     Active Substance: CLONAZEPAM
     Dosage: 1 MG, QD AS NEEDED
  3. SINGULAIR [Concomitant]
     Active Substance: MONTELUKAST SODIUM
     Dosage: 10 MG, QD
  4. LASIX [Concomitant]
     Active Substance: FUROSEMIDE
     Dosage: 40 DAILY
  5. MIRTAZAPINE. [Concomitant]
     Active Substance: MIRTAZAPINE
  6. GABAPENTIN. [Concomitant]
     Active Substance: GABAPENTIN
  7. MIRENA [Suspect]
     Active Substance: LEVONORGESTREL
     Dosage: 20 MCG/24HR, CONT
     Route: 015
     Dates: end: 20140306
  8. BUPROPION [Concomitant]
     Active Substance: BUPROPION
  9. CENTRUM [VIT C,BETACAROT,D3,B9,MIN NOS,RETINOL,VIT E,VIT B NOS] [Concomitant]
  10. ALDACTONE [Concomitant]
     Active Substance: SPIRONOLACTONE
  11. SPIRONOLACTONE. [Concomitant]
     Active Substance: SPIRONOLACTONE
  12. MIRENA [Suspect]
     Active Substance: LEVONORGESTREL
     Dosage: 20 MCG/24HR, CONT
     Route: 015
     Dates: start: 20070809, end: 20120912

REACTIONS (8)
  - Papilloedema [None]
  - Headache [None]
  - Vision blurred [None]
  - Injury [None]
  - Intracranial pressure increased [None]
  - Visual impairment [None]
  - Pain [None]
  - Intracranial pressure increased [None]

NARRATIVE: CASE EVENT DATE: 2011
